FAERS Safety Report 8525011-6 (Version None)
Quarter: 2012Q3

REPORT INFORMATION
  Report Type: 
  Country: None (occurrence: None)
  Receive Date: 20120720
  Receipt Date: 20120713
  Transmission Date: 20120928
  Serious: Yes (Other)
  Sender: FDA-Public Use
  Company Number: DE-BRISTOL-MYERS SQUIBB COMPANY-16768780

PATIENT
  Sex: Male

DRUGS (1)
  1. ABILIFY [Suspect]
     Dosage: FOR THREE QUARTERS OF A YEAR  INCREASED TO 20 MG.

REACTIONS (5)
  - DRUG LEVEL INCREASED [None]
  - PSYCHOTIC DISORDER [None]
  - WHITE BLOOD CELL COUNT DECREASED [None]
  - BLOOD CREATINE PHOSPHOKINASE INCREASED [None]
  - WEIGHT DECREASED [None]
